FAERS Safety Report 6945152-4 (Version None)
Quarter: 2010Q3

REPORT INFORMATION
  Report Type: 
  Country: None (occurrence: None)
  Receive Date: 20100827
  Receipt Date: 20100818
  Transmission Date: 20110219
  Serious: Yes (Other)
  Sender: FDA-Public Use
  Company Number: CA-AMGEN-QUU426757

PATIENT
  Sex: Female

DRUGS (17)
  1. ENBREL [Suspect]
     Indication: RHEUMATOID ARTHRITIS
     Route: 058
  2. SULFASALAZINE [Concomitant]
     Dates: start: 20100723
  3. ZOCOR [Concomitant]
     Dates: start: 20100726
  4. ELTROXIN [Concomitant]
     Dates: start: 20100726
  5. CONJUGATED ESTROGENS [Concomitant]
     Dates: start: 20100726
  6. METOPROLOL [Concomitant]
     Dates: start: 20100726
  7. ALENDRONATE SODIUM [Concomitant]
     Dates: start: 20100726
  8. PRILOSEC [Concomitant]
     Dates: start: 20100726
  9. CETIRIZINE HCL [Concomitant]
     Dates: start: 20100726
  10. TYLENOL W/ CODEINE NO. 2 [Concomitant]
  11. NABUMETONE [Concomitant]
     Dates: start: 20100726
  12. TERBINAFINE HYDROCHLORIDE [Concomitant]
     Dates: start: 20100726
  13. LEFLUNOMIDE [Concomitant]
     Dates: start: 20100726
  14. TIAPROFENIC ACID [Concomitant]
     Dates: start: 20100218
  15. CLARITHROMYCIN [Concomitant]
     Dates: start: 20091222
  16. AMOXICILLIN [Concomitant]
     Dates: start: 20091215
  17. CICLOPIROX [Concomitant]
     Dates: start: 20090825

REACTIONS (6)
  - ASTHENIA [None]
  - GAIT DISTURBANCE [None]
  - MOVEMENT DISORDER [None]
  - PAIN [None]
  - RHEUMATOID ARTHRITIS [None]
  - THERAPEUTIC RESPONSE DECREASED [None]
